FAERS Safety Report 8849140 (Version 1)
Quarter: 2012Q4

REPORT INFORMATION
  Report Type: Spontaneous
  Country: GB (occurrence: None)
  Receive Date: 20121016
  Receipt Date: 20121016
  Transmission Date: 20130627
  Serious: Yes (Other)
  Sender: FDA-Public Use
  Company Number: 2012-01508

PATIENT
  Age: 69 Year
  Sex: Male
  Weight: 97 kg

DRUGS (2)
  1. SIMVASTATIN (SIMVASTATIN) [Suspect]
     Indication: DIABETES
     Route: 048
     Dates: start: 20060802
  2. SIMVASTATIN (SIMVASTATIN) [Suspect]
     Indication: HIGH CHOLESTEROL
     Route: 048
     Dates: start: 20060802

REACTIONS (2)
  - Back pain [None]
  - Food interaction [None]
